FAERS Safety Report 6771644-7 (Version None)
Quarter: 2010Q2

REPORT INFORMATION
  Report Type: 
  Country: None (occurrence: None)
  Receive Date: 20100611
  Receipt Date: 20100601
  Transmission Date: 20101027
  Serious: Yes (Death)
  Sender: FDA-Public Use
  Company Number: B0659717A

PATIENT
  Age: 36 Year
  Sex: Female

DRUGS (5)
  1. ZIDOVUDINE [Suspect]
     Indication: HIV INFECTION
  2. STAVUDINE [Suspect]
     Indication: HIV INFECTION
  3. DIDANOSINE [Suspect]
     Indication: HIV INFECTION
  4. NELFINAVIR MESYLATE [Suspect]
     Indication: HIV INFECTION
  5. GANCICLOVIR [Concomitant]

REACTIONS (7)
  - CYTOMEGALOVIRUS CHORIORETINITIS [None]
  - LUNG DISORDER [None]
  - RETINAL DETACHMENT [None]
  - RETINAL TEAR [None]
  - UVEITIS [None]
  - VASCULITIS [None]
  - VITREOUS FLOATERS [None]
